FAERS Safety Report 6701183-0 (Version None)
Quarter: 2010Q2

REPORT INFORMATION
  Report Type: 
  Country: None (occurrence: None)
  Receive Date: 20100428
  Receipt Date: 20100428
  Transmission Date: 20101027
  Serious: Yes (Life-Threatening, Hospitalization)
  Sender: FDA-Public Use
  Company Number: None

PATIENT
  Sex: Female
  Weight: 113.3993 kg

DRUGS (2)
  1. PHENTERMINE [Suspect]
     Indication: OBESITY
     Dosage: 37.5 MG 1X DAILY
     Dates: start: 20070427, end: 20070918
  2. PHENTERMINE [Suspect]
     Indication: OBESITY
     Dosage: 37.5 MG 1 OR 2 X DAILY
     Dates: start: 20080115, end: 20080701

REACTIONS (16)
  - ARRHYTHMIA [None]
  - BRADYCARDIA [None]
  - CARDIAC VALVE DISEASE [None]
  - CARDIOMYOPATHY [None]
  - DEPRESSION [None]
  - LEFT VENTRICULAR HYPERTROPHY [None]
  - MITRAL VALVE INCOMPETENCE [None]
  - NERVE INJURY [None]
  - OEDEMA PERIPHERAL [None]
  - ORTHOSTATIC INTOLERANCE [None]
  - SLEEP APNOEA SYNDROME [None]
  - SYNCOPE [None]
  - TRICUSPID VALVE INCOMPETENCE [None]
  - VENTRICULAR EXTRASYSTOLES [None]
  - VENTRICULAR FIBRILLATION [None]
  - VENTRICULAR TACHYCARDIA [None]
